FAERS Safety Report 16789134 (Version 2)
Quarter: 2019Q3

REPORT INFORMATION
  Report Type: Spontaneous
  Country: US (occurrence: US)
  Receive Date: 20190910
  Receipt Date: 20190919
  Transmission Date: 20191005
  Serious: Yes (Hospitalization, Other)
  Sender: FDA-Public Use
  Company Number: US-AUROBINDO-AUR-APL-2019-059250

PATIENT
  Age: 53 Year
  Sex: Female

DRUGS (3)
  1. FAMOTIDINE. [Concomitant]
     Active Substance: FAMOTIDINE
     Indication: HIV INFECTION
     Dosage: 20 MILLIGRAM, DAILY
     Route: 048
  2. EMTRICITABINE;TENOFOVIR ALAFENAMIDE [Concomitant]
     Active Substance: EMTRICITABINE\TENOFOVIR
     Indication: HIV INFECTION
     Dosage: UNK, 200-25 MG
     Route: 048
  3. DOLUTEGRAVIR [Suspect]
     Active Substance: DOLUTEGRAVIR
     Indication: HIV INFECTION
     Dosage: 50 MILLIGRAM, DAILY
     Route: 048

REACTIONS (3)
  - Rash [Recovered/Resolved]
  - Palpable purpura [Recovered/Resolved]
  - Cutaneous vasculitis [Recovered/Resolved]
